FAERS Safety Report 20380636 (Version 1)
Quarter: 2022Q1

REPORT INFORMATION
  Report Type: Report from Study
  Country: CA (occurrence: CA)
  Receive Date: 20220127
  Receipt Date: 20220127
  Transmission Date: 20220423
  Serious: Yes (Hospitalization)
  Sender: FDA-Public Use
  Company Number: CA-JNJFOC-20210925399

PATIENT
  Age: 17 Year
  Sex: Female
  Weight: 68.7 kg

DRUGS (1)
  1. REMICADE [Suspect]
     Active Substance: INFLIXIMAB
     Indication: Crohn^s disease
     Dosage: START DATE ALSO REPORTED AS MAR-2021
     Route: 042
     Dates: start: 20151126

REACTIONS (9)
  - Anal abscess [Recovering/Resolving]
  - Nasal congestion [Not Recovered/Not Resolved]
  - Abnormal faeces [Unknown]
  - Inadequate diet [Unknown]
  - Tongue eruption [Recovering/Resolving]
  - Frequent bowel movements [Not Recovered/Not Resolved]
  - Diarrhoea [Unknown]
  - Blood pressure decreased [Recovering/Resolving]
  - Infusion related reaction [Recovering/Resolving]

NARRATIVE: CASE EVENT DATE: 20210801
